FAERS Safety Report 22193110 (Version 1)
Quarter: 2023Q2

REPORT INFORMATION
  Report Type: Spontaneous
  Country: RO (occurrence: RO)
  Receive Date: 20230410
  Receipt Date: 20230410
  Transmission Date: 20230722
  Serious: Yes (Other)
  Sender: FDA-Public Use
  Company Number: RO-AMGEN-ROUSP2023051456

PATIENT
  Age: 67 Year
  Sex: Male

DRUGS (7)
  1. LENALIDOMIDE [Suspect]
     Active Substance: LENALIDOMIDE
     Indication: Plasma cell myeloma
     Dosage: 25 MILLIGRAM (DAY 1 TO DAY 21)
     Route: 042
  2. KYPROLIS [Suspect]
     Active Substance: CARFILZOMIB
     Indication: Plasma cell myeloma
     Dosage: 27 MILLIGRAM/SQ. METER
     Route: 042
     Dates: start: 202205, end: 202212
  3. ELIQUIS [Suspect]
     Active Substance: APIXABAN
     Indication: Arteriosclerosis
     Dosage: 2.5 MILLIGRAM, BID
     Route: 065
  4. ELIQUIS [Suspect]
     Active Substance: APIXABAN
     Indication: Prophylaxis
  5. DEXAMETHASONE [Suspect]
     Active Substance: DEXAMETHASONE
     Indication: Plasma cell myeloma
     Dosage: 12 MILLIGRAM, QWK
     Route: 065
  6. SULFAMETHOXAZOLE\TRIMETHOPRIM [Suspect]
     Active Substance: SULFAMETHOXAZOLE\TRIMETHOPRIM
     Indication: Prophylaxis
     Dosage: 400/80 MG 2 CAPSULES/DAY X 3TWEEK
     Route: 065
  7. ACYCLOVIR [Suspect]
     Active Substance: ACYCLOVIR
     Indication: Prophylaxis
     Dosage: 400 MILLIGRAM, BID
     Route: 065

REACTIONS (18)
  - Plasma cell myeloma [Unknown]
  - Haemorrhagic disorder [Unknown]
  - Ventricular arrhythmia [Unknown]
  - Pneumonia [Unknown]
  - Thrombocytopenia [Unknown]
  - Leukopenia [Unknown]
  - Irritable bowel syndrome [Unknown]
  - Atrioventricular block [Unknown]
  - Haemoptysis [Unknown]
  - Chronic obstructive pulmonary disease [Unknown]
  - Diastolic dysfunction [Unknown]
  - Arteriosclerosis [Unknown]
  - Rash pruritic [Unknown]
  - Hypertension [Unknown]
  - Diarrhoea [Unknown]
  - Anaemia [Unknown]
  - Dyspnoea [Unknown]
  - Weight decreased [Unknown]

NARRATIVE: CASE EVENT DATE: 20220901
